FAERS Safety Report 8493416-8 (Version None)
Quarter: 2012Q3

REPORT INFORMATION
  Report Type: 
  Country: None (occurrence: None)
  Receive Date: 20120706
  Receipt Date: 20120628
  Transmission Date: 20120928
  Serious: Yes (Hospitalization)
  Sender: FDA-Public Use
  Company Number: US-JNJFOC-20110706897

PATIENT
  Sex: Female
  Weight: 61.69 kg

DRUGS (9)
  1. FLORINEF [Concomitant]
  2. KLONOPIN [Concomitant]
  3. MIDODRINE HYDROCHLORIDE [Concomitant]
  4. AMITIZA [Concomitant]
  5. PRILOSEC [Concomitant]
  6. TRILEPTAL [Concomitant]
  7. MESALAMINE [Concomitant]
     Route: 048
  8. REMICADE [Suspect]
     Indication: INFLAMMATORY BOWEL DISEASE
     Route: 042
     Dates: start: 20081110, end: 20100422
  9. SENOKOT [Concomitant]

REACTIONS (1)
  - IRRITABLE BOWEL SYNDROME [None]
